FAERS Safety Report 13135722 (Version 5)
Quarter: 2022Q3

REPORT INFORMATION
  Report Type: Report from Study
  Country: KR (occurrence: None)
  Receive Date: 20170120
  Receipt Date: 20220810
  Transmission Date: 20221027
  Serious: Yes (Hospitalization)
  Sender: FDA-Public Use
  Company Number: KR-ROCHE-1874436

PATIENT
  Age: 62 Year
  Sex: Male
  Weight: 60 kg

DRUGS (9)
  1. ATEZOLIZUMAB [Suspect]
     Active Substance: ATEZOLIZUMAB
     Indication: Non-small cell lung cancer metastatic
     Dosage: MOST RECENT DOSE: 02/JAN/2017 (1200 MG).?DOSE AS PER PROTOCOL
     Route: 041
     Dates: start: 20170102
  2. MEGESTROL [Concomitant]
     Active Substance: MEGESTROL
     Indication: Decreased appetite
     Dates: start: 20170102
  3. MAXNOPHEN [Concomitant]
     Indication: Cancer pain
     Dosage: REPORTED AS: MAXNOPHEN SEMI
     Dates: start: 20170114
  4. SMOFLIPID [Concomitant]
     Active Substance: FISH OIL\MEDIUM-CHAIN TRIGLYCERIDES\OLIVE OIL\SOYBEAN OIL
     Indication: Decreased appetite
     Dates: start: 20170116, end: 20170120
  5. TRAMADOL [Concomitant]
     Active Substance: TRAMADOL
     Indication: Cancer pain
     Dates: start: 20170114
  6. HEPATAMINE [Concomitant]
     Active Substance: ALANINE\ARGININE\CYSTEINE\GLYCINE\HISTIDINE\ISOLEUCINE\LEUCINE\LYSINE\METHIONINE\PHENYLALANINE\PROLI
     Indication: Decreased appetite
     Dates: start: 20170114
  7. NALOXONE HYDROCHLORIDE\OXYCODONE HYDROCHLORIDE [Concomitant]
     Active Substance: NALOXONE HYDROCHLORIDE\OXYCODONE HYDROCHLORIDE
     Indication: Cancer pain
     Dates: start: 20170120
  8. LIDOCAINE [Concomitant]
     Active Substance: LIDOCAINE
     Indication: Stomatitis
     Dates: start: 20170119
  9. TACOPEN [Concomitant]
     Indication: Cancer pain
     Dates: start: 20170117

REACTIONS (2)
  - Infusion related reaction [Not Recovered/Not Resolved]
  - Pruritus [Recovered/Resolved]

NARRATIVE: CASE EVENT DATE: 20170102
